FAERS Safety Report 5164612-2 (Version None)
Quarter: 2006Q4

REPORT INFORMATION
  Report Type: 
  Country: None (occurrence: None)
  Receive Date: 20061205
  Receipt Date: 20061130
  Transmission Date: 20070319
  Serious: Yes (Disabling)
  Sender: FDA-Public Use
  Company Number: 2006AP05768

PATIENT
  Age: 7895 Day
  Sex: Female
  Weight: 53 kg

DRUGS (4)
  1. SEROQUEL [Suspect]
     Indication: PSYCHOTIC DISORDER
     Route: 048
     Dates: start: 20050201
  2. RULIDE [Interacting]
     Indication: UPPER RESPIRATORY TRACT INFECTION
     Route: 048
     Dates: start: 20061120, end: 20061124
  3. EPILIM [Concomitant]
     Indication: DEPRESSION
     Route: 048
     Dates: start: 20050201
  4. LUVOX [Concomitant]
     Indication: DEPRESSION
     Route: 048
     Dates: start: 20050201

REACTIONS (3)
  - DRUG INTERACTION [None]
  - LETHARGY [None]
  - SOMNOLENCE [None]
